FAERS Safety Report 5948260-X (Version None)
Quarter: 2008Q4

REPORT INFORMATION
  Report Type: 
  Country: None (occurrence: None)
  Receive Date: 20081111
  Receipt Date: 20081103
  Transmission Date: 20090506
  Serious: Yes (Hospitalization)
  Sender: FDA-Public Use
  Company Number: PH-TEVA-180004ISR

PATIENT
  Age: 13 Year
  Sex: Female

DRUGS (10)
  1. METHYLPREDNISOLONE 16MG TAB [Suspect]
  2. ALEMTUZUMAB [Suspect]
  3. MYCOPHENOLATE MOFETIL [Suspect]
  4. CYCLOSPORINE [Suspect]
     Dosage: 90-110 NG/ML
  5. ACETAMINOPHEN [Concomitant]
  6. DIPHENHYDRAMINE HCL [Concomitant]
  7. ISONIAZID [Concomitant]
  8. BACTRIM [Concomitant]
  9. VALACYCLOVIR HCL [Concomitant]
  10. NYSTATIN [Concomitant]

REACTIONS (5)
  - DIARRHOEA [None]
  - INFECTION [None]
  - NEPHROPATHY TOXIC [None]
  - NEUTROPENIA [None]
  - PYREXIA [None]
